FAERS Safety Report 5105405-1 (Version None)
Quarter: 2006Q3

REPORT INFORMATION
  Report Type: 
  Country: None (occurrence: None)
  Receive Date: 20060915
  Receipt Date: 20060831
  Transmission Date: 20061208
  Serious: Yes (Hospitalization, Other)
  Sender: FDA-Public Use
  Company Number: FRWYE820231AUG06

PATIENT
  Sex: Female

DRUGS (2)
  1. ENBREL [Suspect]
     Indication: RHEUMATOID ARTHRITIS
     Dosage: UNKNOWN
     Route: 058
     Dates: start: 20041001, end: 20050901
  2. ENBREL [Suspect]
     Route: 058
     Dates: start: 20060601, end: 20060630

REACTIONS (4)
  - DNA ANTIBODY POSITIVE [None]
  - INFLAMMATION [None]
  - RASH [None]
  - SYSTEMIC LUPUS ERYTHEMATOSUS [None]
